FAERS Safety Report 14254813 (Version 1)
Quarter: 2017Q4

REPORT INFORMATION
  Report Type: Spontaneous
  Country: US (occurrence: None)
  Receive Date: 20171205
  Receipt Date: 20171205
  Transmission Date: 20180321
  Serious: No
  Sender: FDA-Public Use
  Company Number: None

PATIENT
  Age: 63 Year
  Sex: Female

DRUGS (5)
  1. REVLIMID [Suspect]
     Active Substance: LENALIDOMIDE
     Indication: PLASMA CELL MYELOMA
     Dosage: 5MG DAILY X7 DAYS, THEN 7 OFF ORAL
     Route: 048
     Dates: start: 20160602
  2. ACYCLOVIR. [Concomitant]
     Active Substance: ACYCLOVIR
  3. CALCITRIOL. [Concomitant]
     Active Substance: CALCITRIOL
  4. ALENDRONATE [Concomitant]
     Active Substance: ALENDRONATE SODIUM
  5. VITAMIN D2 [Concomitant]
     Active Substance: ERGOCALCIFEROL

REACTIONS (2)
  - Fatigue [None]
  - Neuropathy peripheral [None]

NARRATIVE: CASE EVENT DATE: 20170901
